FAERS Safety Report 8880878 (Version 1)
Quarter: 2012Q4

REPORT INFORMATION
  Report Type: 
  Country: US (occurrence: US)
  Receive Date: 20121101
  Receipt Date: 20121101
  Transmission Date: 20130627
  Serious: Yes (Other)
  Sender: FDA-Public Use
  Company Number: US-ELI_LILLY_AND_COMPANY-US201210007001

PATIENT
  Age: 77 Year
  Sex: Male

DRUGS (13)
  1. CYMBALTA [Suspect]
     Indication: PAIN
     Dosage: 30 mg, qd
     Dates: start: 2008
  2. AVONEX [Concomitant]
     Indication: MULTIPLE SCLEROSIS
  3. SOLUMEDROL [Concomitant]
  4. COPAXONE [Concomitant]
  5. ASPIRIN [Concomitant]
     Dosage: 81 mg, UNK
  6. BENICAR [Concomitant]
     Dosage: 20 mg, UNK
  7. GLUMETZA [Concomitant]
  8. LEVOTHYROXINE [Concomitant]
  9. TAMSULOSIN [Concomitant]
     Indication: GLAUCOMA
  10. TOPRAL [Concomitant]
  11. VALIUM [Concomitant]
  12. WARFARIN [Concomitant]
  13. ZOCOR [Concomitant]

REACTIONS (5)
  - Suicidal ideation [Unknown]
  - Poor peripheral circulation [Unknown]
  - Mental impairment [Unknown]
  - Mood swings [Unknown]
  - Rash [Unknown]
